FAERS Safety Report 26161183 (Version 1)
Quarter: 2025Q4

REPORT INFORMATION
  Report Type: Spontaneous
  Country: GB (occurrence: GB)
  Receive Date: 20251216
  Receipt Date: 20251216
  Transmission Date: 20260117
  Serious: Yes (Life-Threatening, Disabling, Other)
  Sender: ACCORD
  Company Number: None

PATIENT
  Age: 60 Year
  Sex: Female
  Weight: 47 kg

DRUGS (7)
  1. AMITRIPTYLINE [Suspect]
     Active Substance: AMITRIPTYLINE
     Indication: Product used for unknown indication
  2. GABAPENTIN [Suspect]
     Active Substance: GABAPENTIN
     Indication: Product used for unknown indication
  3. TRAMADOL HYDROCHLORIDE [Suspect]
     Active Substance: TRAMADOL HYDROCHLORIDE
     Indication: Adverse drug reaction
     Dosage: 50 MG EVERY 6 HOURS
     Dates: start: 20250425
  4. BACLOFEN [Suspect]
     Active Substance: BACLOFEN
     Indication: Product used for unknown indication
  5. PAROXETINE [Concomitant]
     Active Substance: PAROXETINE
  6. ZOLEDRONIC ACID [Concomitant]
     Active Substance: ZOLEDRONIC ACID
  7. DIAZEPAM [Concomitant]
     Active Substance: DIAZEPAM

REACTIONS (12)
  - Mood swings [Unknown]
  - Dizziness [Unknown]
  - Vomiting [Unknown]
  - Anal incontinence [Unknown]
  - Paranoia [Unknown]
  - Cauda equina syndrome [Unknown]
  - Emotional distress [Unknown]
  - Psychotic disorder [Not Recovered/Not Resolved]
  - Nausea [Unknown]
  - Aggression [Unknown]
  - Osteonecrosis [Unknown]
  - Contraindication to medical treatment [Unknown]
